FAERS Safety Report 5099790-7 (Version None)
Quarter: 2006Q3

REPORT INFORMATION
  Report Type: 
  Country: None (occurrence: None)
  Receive Date: 20060908
  Receipt Date: 20060811
  Transmission Date: 20061208
  Serious: No
  Sender: FDA-Public Use
  Company Number: 2006AP03813

PATIENT
  Sex: Female

DRUGS (1)
  1. XYLOCAINE VISCOUS [Suspect]
     Indication: ANAESTHESIA
     Route: 049

REACTIONS (2)
  - BRONCHOSPASM [None]
  - SHOCK [None]
